FAERS Safety Report 7342734-5 (Version None)
Quarter: 2011Q1

REPORT INFORMATION
  Report Type: 
  Country: None (occurrence: None)
  Receive Date: 20110301
  Receipt Date: 20110221
  Transmission Date: 20110831
  Serious: Yes (Death, Hospitalization)
  Sender: FDA-Public Use
  Company Number: CIP11000265

PATIENT
  Age: 86 Year
  Sex: Male

DRUGS (9)
  1. CALCIT-S (CALCITONIN, SALMON) [Concomitant]
  2. FURADANTIN [Suspect]
     Indication: URINARY TRACT INFECTION
     Dosage: DOSAGE / REGIMEN; ORAL
     Route: 048
     Dates: start: 20101202, end: 20101209
  3. MOVICOL (MACROGOL, POTASSIUM CHLORIDE, SODIUM BICARBONATE, SODIUM CHLO [Concomitant]
  4. TRIVASTAL (PIRIBEDIL) [Concomitant]
  5. PANTOPRAZOLE SODIUM [Concomitant]
  6. KARDEGIC (ACETYLSALICYLATE LYSINE) [Concomitant]
  7. DONORMYL (DOXYLAMINE SUCCINATE) [Concomitant]
  8. ATACAND (CANDESATRAN CILEXETIL) [Concomitant]
  9. ACTONEL [Concomitant]

REACTIONS (18)
  - VENTRICULAR HYPERKINESIA [None]
  - PSEUDOMONAS INFECTION [None]
  - PULMONARY FIBROSIS [None]
  - INTERSTITIAL LUNG DISEASE [None]
  - SINUS TACHYCARDIA [None]
  - MECHANICAL VENTILATION COMPLICATION [None]
  - SEPTIC SHOCK [None]
  - BLOOD GLUCOSE INCREASED [None]
  - BLOOD LACTATE DEHYDROGENASE DECREASED [None]
  - ACUTE RESPIRATORY DISTRESS SYNDROME [None]
  - RASH [None]
  - JUGULAR VEIN DISTENSION [None]
  - PLEURAL EFFUSION [None]
  - AORTIC VALVE INCOMPETENCE [None]
  - BRAIN NATRIURETIC PEPTIDE INCREASED [None]
  - LUNG DISORDER [None]
  - HAEMOGLOBIN DECREASED [None]
  - LEFT VENTRICULAR HYPERTROPHY [None]
